FAERS Safety Report 7249908-2 (Version None)
Quarter: 2011Q1

REPORT INFORMATION
  Report Type: 
  Country: None (occurrence: None)
  Receive Date: 20110128
  Receipt Date: 20100726
  Transmission Date: 20110831
  Serious: No
  Sender: FDA-Public Use
  Company Number: A0878166A

PATIENT
  Age: 63 Year
  Sex: Female

DRUGS (7)
  1. AMITRIPTYLINE HCL [Concomitant]
  2. DESIPRAMINE [Concomitant]
  3. ADDERALL 10 [Concomitant]
  4. BUPROPION HCL [Suspect]
     Indication: DEPRESSION
     Route: 065
     Dates: start: 20080101, end: 20090101
  5. LEXAPRO [Concomitant]
     Dosage: 20MG PER DAY
  6. ESTRADIOL [Concomitant]
  7. CYTOMEL [Concomitant]
     Dosage: 100MG PER DAY

REACTIONS (3)
  - PRODUCT QUALITY ISSUE [None]
  - DEPRESSION [None]
  - DRUG INEFFECTIVE [None]
